FAERS Safety Report 5256875-X (Version None)
Quarter: 2007Q1

REPORT INFORMATION
  Report Type: 
  Country: None (occurrence: None)
  Receive Date: 20070306
  Receipt Date: 20070226
  Transmission Date: 20070707
  Serious: Yes (Hospitalization)
  Sender: FDA-Public Use
  Company Number: US-ELI_LILLY_AND_COMPANY-US200702005250

PATIENT
  Sex: Female

DRUGS (4)
  1. FORTEO [Suspect]
     Indication: OSTEOPOROSIS
     Dosage: 20 UG, DAILY (1/D)
     Route: 058
     Dates: start: 20060201
  2. METHOTREXATE [Concomitant]
  3. COUMADIN [Concomitant]
  4. PREDNISONE [Concomitant]

REACTIONS (3)
  - DYSPHAGIA [None]
  - ERYTHEMA [None]
  - THROMBOSIS [None]
